FAERS Safety Report 6536563-X (Version None)
Quarter: 2010Q1

REPORT INFORMATION
  Report Type: 
  Country: None (occurrence: None)
  Receive Date: 20100106
  Receipt Date: 20091208
  Transmission Date: 20100710
  Serious: Yes (Disabling, Other)
  Sender: FDA-Public Use
  Company Number: 2008SP018173

PATIENT
  Age: 29 Year
  Sex: Male

DRUGS (3)
  1. NASONEX [Suspect]
     Indication: INFLUENZA
     Dosage: 2 DF;BID;NAS
     Route: 045
     Dates: start: 20030415, end: 20080315
  2. RHINOCORT [Suspect]
     Indication: INFLUENZA
     Dosage: 2 DF;BID;NAS
     Route: 045
     Dates: start: 20030415, end: 20080315
  3. MEDROL [Suspect]
     Indication: MUSCULOSKELETAL PAIN
     Dates: start: 20061201

REACTIONS (8)
  - BONE INFARCTION [None]
  - ELECTRIC SHOCK [None]
  - INSOMNIA [None]
  - OSTEOARTHRITIS [None]
  - OSTEOCHONDROSIS [None]
  - OSTEONECROSIS [None]
  - TENDON CALCIFICATION [None]
  - UPPER LIMB FRACTURE [None]
